FAERS Safety Report 22815184 (Version 7)
Quarter: 2025Q3

REPORT INFORMATION
  Report Type: Spontaneous
  Country: US (occurrence: US)
  Receive Date: 20230811
  Receipt Date: 20250731
  Transmission Date: 20251020
  Serious: Yes (Hospitalization, Other)
  Sender: PFIZER
  Company Number: US-PFIZER INC-PV202300137184

PATIENT
  Age: 78 Year
  Sex: Female
  Weight: 79 kg

DRUGS (2)
  1. XELJANZ XR [Suspect]
     Active Substance: TOFACITINIB CITRATE
     Indication: Rheumatoid arthritis
     Dosage: 11 MG, 1X/DAY
  2. METHOTREXATE [Concomitant]
     Active Substance: METHOTREXATE
     Dosage: 15 MG, WEEKLY (6 TABLETS EVERY WEEK)

REACTIONS (5)
  - COVID-19 [Unknown]
  - Lower limb fracture [Unknown]
  - Condition aggravated [Not Recovered/Not Resolved]
  - Inflammation [Unknown]
  - Pain [Unknown]
